FAERS Safety Report 5659464-8 (Version None)
Quarter: 2008Q1

REPORT INFORMATION
  Report Type: 
  Country: None (occurrence: None)
  Receive Date: 20080307
  Receipt Date: 20080307
  Transmission Date: 20080703
  Serious: Yes (Other)
  Sender: FDA-Public Use
  Company Number: None

PATIENT
  Age: 73 Year
  Sex: Male

DRUGS (1)
  1. GAMMAGARD [Suspect]
     Indication: IMMUNOGLOBULINS DECREASED
     Dosage: 60 GM EVERY MONTH IV DRIP
     Route: 041
     Dates: start: 20080301, end: 20080301

REACTIONS (5)
  - BACK PAIN [None]
  - CHILLS [None]
  - FEELING COLD [None]
  - INFUSION RELATED REACTION [None]
  - TREMOR [None]
